FAERS Safety Report 16558049 (Version 2)
Quarter: 2019Q3

REPORT INFORMATION
  Report Type: Spontaneous
  Country: CN (occurrence: CN)
  Receive Date: 20190711
  Receipt Date: 20190718
  Transmission Date: 20191004
  Serious: Yes (Other)
  Sender: FDA-Public Use
  Company Number: CN-ROCHE-2350374

PATIENT
  Age: 48 Year
  Sex: Female

DRUGS (25)
  1. BEVACIZUMAB. [Suspect]
     Active Substance: BEVACIZUMAB
     Indication: LUNG NEOPLASM MALIGNANT
     Route: 065
     Dates: start: 20170323
  2. BEVACIZUMAB. [Suspect]
     Active Substance: BEVACIZUMAB
     Route: 065
     Dates: start: 20181211
  3. PEMETREXED. [Suspect]
     Active Substance: PEMETREXED
     Indication: LUNG NEOPLASM MALIGNANT
     Route: 065
     Dates: start: 20170323
  4. GEFITINIB. [Suspect]
     Active Substance: GEFITINIB
     Indication: METASTASES TO PLEURA
  5. BEVACIZUMAB. [Suspect]
     Active Substance: BEVACIZUMAB
     Indication: METASTASES TO PLEURA
     Route: 065
     Dates: start: 20180214
  6. PEMETREXED. [Suspect]
     Active Substance: PEMETREXED
     Indication: METASTASES TO HEART
     Route: 065
     Dates: start: 20170413, end: 20170706
  7. CARBOPLATIN. [Suspect]
     Active Substance: CARBOPLATIN
     Indication: METASTASES TO HEART
     Route: 065
     Dates: start: 20170413, end: 20170706
  8. CARBOPLATIN. [Suspect]
     Active Substance: CARBOPLATIN
     Route: 065
     Dates: start: 20180204
  9. WARFARIN [Concomitant]
     Active Substance: WARFARIN
     Route: 065
  10. GEFITINIB. [Suspect]
     Active Substance: GEFITINIB
     Indication: LUNG NEOPLASM MALIGNANT
     Route: 048
     Dates: start: 20170901, end: 20180307
  11. ICOTINIB [Suspect]
     Active Substance: ICOTINIB
     Indication: LUNG NEOPLASM MALIGNANT
     Route: 065
     Dates: start: 20180307, end: 20181220
  12. NEDAPLATIN [Suspect]
     Active Substance: NEDAPLATIN
     Indication: LUNG NEOPLASM MALIGNANT
     Route: 065
     Dates: start: 20181210
  13. BEVACIZUMAB. [Suspect]
     Active Substance: BEVACIZUMAB
     Indication: METASTASES TO HEART
     Route: 065
     Dates: start: 20180124
  14. CARBOPLATIN. [Suspect]
     Active Substance: CARBOPLATIN
     Indication: LUNG NEOPLASM MALIGNANT
     Route: 065
     Dates: start: 20170323
  15. CARBOPLATIN. [Suspect]
     Active Substance: CARBOPLATIN
     Route: 065
     Dates: start: 20180208
  16. ICOTINIB [Suspect]
     Active Substance: ICOTINIB
     Indication: METASTASES TO PLEURA
  17. OSIMERTINIB. [Suspect]
     Active Substance: OSIMERTINIB
     Indication: METASTASES TO HEART
  18. CARBOPLATIN. [Suspect]
     Active Substance: CARBOPLATIN
     Route: 065
     Dates: start: 20180214
  19. ICOTINIB [Suspect]
     Active Substance: ICOTINIB
     Indication: METASTASES TO HEART
  20. ENOXAPARIN [Concomitant]
     Active Substance: ENOXAPARIN
     Route: 065
  21. PEMETREXED. [Suspect]
     Active Substance: PEMETREXED
     Indication: METASTASES TO PLEURA
  22. CARBOPLATIN. [Suspect]
     Active Substance: CARBOPLATIN
     Indication: METASTASES TO PLEURA
     Route: 065
     Dates: start: 20180127
  23. GEFITINIB. [Suspect]
     Active Substance: GEFITINIB
     Indication: METASTASES TO HEART
  24. OSIMERTINIB. [Suspect]
     Active Substance: OSIMERTINIB
     Indication: METASTASES TO PLEURA
  25. OSIMERTINIB. [Suspect]
     Active Substance: OSIMERTINIB
     Indication: LUNG NEOPLASM MALIGNANT
     Route: 048
     Dates: start: 20181220

REACTIONS (4)
  - Pleural effusion [Recovering/Resolving]
  - Embolism venous [Unknown]
  - Pericarditis [Unknown]
  - Deep vein thrombosis [Unknown]

NARRATIVE: CASE EVENT DATE: 20180205
